FAERS Safety Report 8100974-1 (Version None)
Quarter: 2012Q1

REPORT INFORMATION
  Report Type: 
  Country: None (occurrence: None)
  Receive Date: 20120129
  Receipt Date: 20111019
  Transmission Date: 20120608
  Serious: No
  Sender: FDA-Public Use
  Company Number: US-ABBOTT-11P-163-0866994-00

PATIENT
  Sex: Male

DRUGS (14)
  1. HUMIRA [Suspect]
     Indication: CROHN'S DISEASE
     Dosage: DAY ONE
     Route: 058
     Dates: start: 20110930, end: 20110930
  2. M.V.I. [Concomitant]
     Indication: PRODUCT USED FOR UNKNOWN INDICATION
  3. METRONIDAZOLE [Concomitant]
     Indication: PROPHYLAXIS
  4. CIPROFLOXACIN [Concomitant]
     Indication: INFECTION PROPHYLAXIS
  5. DICYCLOMINE [Concomitant]
     Indication: MUSCLE SPASMS
  6. LORTAB [Concomitant]
     Indication: PAIN
  7. HUMIRA [Suspect]
  8. STOOL SOFTENER [Concomitant]
     Indication: PRODUCT USED FOR UNKNOWN INDICATION
     Dosage: DAILY
  9. OXYCODONE HCL [Concomitant]
     Indication: PAIN
     Dosage: 1 EVERY 6 HOURS AS NEEDED
  10. ZYRTEC [Concomitant]
     Indication: HYPERSENSITIVITY
  11. PREDNISONE TAB [Concomitant]
     Indication: INFLAMMATION
  12. ONDANSETRON HCL [Concomitant]
     Indication: NAUSEA
  13. ATIVAN [Concomitant]
     Indication: ANXIETY
  14. IMURAN [Concomitant]
     Indication: PRODUCT USED FOR UNKNOWN INDICATION

REACTIONS (1)
  - INJECTION SITE PAIN [None]
